FAERS Safety Report 20923744 (Version 6)
Quarter: 2023Q2

REPORT INFORMATION
  Report Type: Report from Study
  Country: NL (occurrence: None)
  Receive Date: 20220607
  Receipt Date: 20230626
  Transmission Date: 20230722
  Serious: Yes (Death, Hospitalization)
  Sender: FDA-Public Use
  Company Number: NL-ROCHE-3112594

PATIENT
  Age: 76 Year
  Sex: Male
  Weight: 110 kg

DRUGS (21)
  1. RITUXIMAB [Suspect]
     Active Substance: RITUXIMAB
     Indication: Follicular lymphoma
     Dosage: ON 04/AUG/2021, 17/JAN/2022, 14/MAR/2022 LAST DOSE OF RITUXIMAB PRIOR TO EVENT
     Route: 041
     Dates: start: 20211122, end: 20211213
  2. RITUXIMAB [Suspect]
     Active Substance: RITUXIMAB
     Route: 041
     Dates: start: 20211220, end: 20220314
  3. EPCORITAMAB [Suspect]
     Active Substance: EPCORITAMAB
     Indication: Follicular lymphoma
     Dosage: PRIMING DOSE OF (0.16 MG) ON 22-NOV-2021, THE INTERMEDIATE DOSE OF (0.8 MG) ON 29-NOV-2021 AND THE F
     Route: 058
     Dates: start: 20211122, end: 20211122
  4. EPCORITAMAB [Suspect]
     Active Substance: EPCORITAMAB
     Route: 058
     Dates: start: 20211129, end: 20211129
  5. EPCORITAMAB [Suspect]
     Active Substance: EPCORITAMAB
     Route: 058
     Dates: start: 20211206, end: 20220110
  6. EPCORITAMAB [Suspect]
     Active Substance: EPCORITAMAB
     Route: 058
     Dates: start: 20220117, end: 20220411
  7. LENALIDOMIDE [Suspect]
     Active Substance: LENALIDOMIDE
     Indication: Follicular lymphoma
     Route: 048
     Dates: start: 20211122, end: 20211212
  8. LENALIDOMIDE [Suspect]
     Active Substance: LENALIDOMIDE
     Route: 048
     Dates: start: 20211220, end: 20220109
  9. LENALIDOMIDE [Suspect]
     Active Substance: LENALIDOMIDE
     Route: 048
     Dates: start: 20220117, end: 20220206
  10. LENALIDOMIDE [Suspect]
     Active Substance: LENALIDOMIDE
     Route: 048
     Dates: start: 20220214, end: 20220306
  11. LENALIDOMIDE [Suspect]
     Active Substance: LENALIDOMIDE
     Route: 048
     Dates: start: 20220314, end: 20220403
  12. LENALIDOMIDE [Suspect]
     Active Substance: LENALIDOMIDE
     Route: 048
     Dates: start: 20220411, end: 20220426
  13. ASPIRIN [Concomitant]
     Active Substance: ASPIRIN
     Dates: start: 20180117, end: 20220430
  14. SULFAMETHOXAZOLE\TRIMETHOPRIM [Concomitant]
     Active Substance: SULFAMETHOXAZOLE\TRIMETHOPRIM
     Dates: start: 20211122
  15. NADROPARIN CALCIUM [Concomitant]
     Active Substance: NADROPARIN CALCIUM
     Dates: start: 20220425, end: 20220430
  16. GLICLAZIDE [Concomitant]
     Active Substance: GLICLAZIDE
     Dates: start: 20220110, end: 20220426
  17. METFORMIN [Concomitant]
     Active Substance: METFORMIN HYDROCHLORIDE
     Dates: start: 20210917
  18. METOPROLOL [Concomitant]
     Active Substance: METOPROLOL
     Dates: start: 20180107
  19. MOMETASONE [Concomitant]
     Active Substance: MOMETASONE
  20. SILDENAFIL [Concomitant]
     Active Substance: SILDENAFIL
  21. SIMVASTATIN [Concomitant]
     Active Substance: SIMVASTATIN

REACTIONS (2)
  - COVID-19 [Fatal]
  - Sinusitis [Unknown]

NARRATIVE: CASE EVENT DATE: 20220228
